FAERS Safety Report 11387817 (Version 3)
Quarter: 2016Q1

REPORT INFORMATION
  Report Type: Spontaneous
  Country: CN (occurrence: US)
  Receive Date: 20150817
  Receipt Date: 20160309
  Transmission Date: 20160525
  Serious: Yes (Hospitalization)
  Sender: FDA-Public Use
  Company Number: CN-NOVOPROD-459686

PATIENT
  Age: 67 Year
  Sex: Female
  Weight: 45 kg

DRUGS (2)
  1. NOVOLIN [Suspect]
     Active Substance: INSULIN HUMAN
     Indication: TYPE 2 DIABETES MELLITUS
     Dosage: 18 IU, QD
     Route: 058
     Dates: start: 2002
  2. NOVOLIN [Suspect]
     Active Substance: INSULIN HUMAN
     Dosage: 9 IU, QD
     Route: 058
     Dates: start: 2002

REACTIONS (6)
  - Ketoacidosis [Recovering/Resolving]
  - Chest discomfort [Unknown]
  - Product physical issue [Unknown]
  - Vision blurred [Unknown]
  - Product quality issue [Unknown]
  - Peripheral swelling [Unknown]

NARRATIVE: CASE EVENT DATE: 2015
